FAERS Safety Report 17244470 (Version 1)
Quarter: 2020Q1

REPORT INFORMATION
  Report Type: Spontaneous
  Country: US (occurrence: US)
  Receive Date: 20200107
  Receipt Date: 20200107
  Transmission Date: 20200409
  Serious: Yes (Other)
  Sender: FDA-Public Use
  Company Number: US-GILEAD-2020-0445096

PATIENT
  Sex: Male

DRUGS (1)
  1. TRUVADA [Suspect]
     Active Substance: EMTRICITABINE\TENOFOVIR DISOPROXIL FUMARATE
     Indication: HIV INFECTION
     Dosage: UNK
     Route: 048
     Dates: start: 2008, end: 2013

REACTIONS (11)
  - Bone density decreased [Unknown]
  - Anhedonia [Not Recovered/Not Resolved]
  - Chronic kidney disease [Unknown]
  - Tooth loss [Unknown]
  - Anxiety [Not Recovered/Not Resolved]
  - Osteoporosis [Unknown]
  - Pain [Not Recovered/Not Resolved]
  - Spinal fracture [Unknown]
  - Spinal fracture [Unknown]
  - Emotional distress [Not Recovered/Not Resolved]
  - Economic problem [Not Recovered/Not Resolved]

NARRATIVE: CASE EVENT DATE: 2016
